FAERS Safety Report 7541764-8 (Version None)
Quarter: 2011Q2

REPORT INFORMATION
  Report Type: 
  Country: None (occurrence: None)
  Receive Date: 20110613
  Receipt Date: 20110602
  Transmission Date: 20111010
  Serious: Yes (Life-Threatening)
  Sender: FDA-Public Use
  Company Number: GB-JNJFOC-20110602553

PATIENT
  Age: 81 Year
  Sex: Female
  Weight: 50 kg

DRUGS (11)
  1. OMEPRAZOLE [Concomitant]
     Route: 048
  2. GALANTAMINE HYDROBROMIDE [Suspect]
     Indication: DEMENTIA ALZHEIMER'S TYPE
     Route: 048
     Dates: start: 20100218, end: 20100220
  3. CALCICHEW [Concomitant]
     Route: 048
  4. LISINOPRIL [Concomitant]
     Route: 048
  5. ACETAMINOPHEN [Concomitant]
     Route: 048
  6. POTASSIUM CHLORIDE [Concomitant]
     Route: 048
  7. FUROSEMIDE [Concomitant]
     Route: 048
  8. ALBUTEROL [Concomitant]
     Route: 055
  9. ALENDRONIC ACID [Concomitant]
     Route: 048
  10. SYMBICORT [Concomitant]
     Route: 055
  11. ASPIRIN [Concomitant]
     Route: 048
     Dates: start: 20101201

REACTIONS (2)
  - GASTROINTESTINAL HAEMORRHAGE [None]
  - PEPTIC ULCER [None]
